FAERS Safety Report 4465529-9 (Version None)
Quarter: 2004Q4

REPORT INFORMATION
  Report Type: 
  Country: None (occurrence: None)
  Receive Date: 20041004
  Receipt Date: 20040316
  Transmission Date: 20050328
  Serious: No
  Sender: FDA-Public Use
  Company Number: US-GLAXOSMITHKLINE-A0502985A

PATIENT
  Age: 50 Year
  Sex: Female

DRUGS (4)
  1. IMITREX [Suspect]
     Indication: MIGRAINE
     Dosage: 1SPR AS REQUIRED
     Route: 045
     Dates: start: 20020101
  2. DEPAKOTE [Concomitant]
  3. VERAPAMIL [Concomitant]
  4. NORTRIPTYLINE HCL [Concomitant]

REACTIONS (1)
  - DYSGEUSIA [None]
